FAERS Safety Report 14277468 (Version 1)
Quarter: 2017Q4

REPORT INFORMATION
  Report Type: Spontaneous
  Country: JP (occurrence: JP)
  Receive Date: 20171211
  Receipt Date: 20171211
  Transmission Date: 20180321
  Serious: Yes (Other)
  Sender: FDA-Public Use
  Company Number: JP-OTSUKA-JP-2013-10520

PATIENT
  Age: 28 Year
  Sex: Female

DRUGS (12)
  1. AKINETON [Concomitant]
     Active Substance: BIPERIDEN HYDROCHLORIDE
     Indication: PARKINSONISM
     Dosage: 3 MG, QD
     Route: 048
     Dates: start: 20040417
  2. ABILIFY [Suspect]
     Active Substance: ARIPIPRAZOLE
     Indication: SCHIZOPHRENIA
     Dosage: 12 MG, BID
     Route: 048
     Dates: start: 20120907, end: 20120910
  3. DEPAKENE [Concomitant]
     Active Substance: VALPROIC ACID
     Indication: CYCLOTHYMIC DISORDER
     Dosage: 100 MG, BID
     Route: 048
     Dates: start: 20040417
  4. TOLOPELON [Concomitant]
     Indication: SCHIZOPHRENIA
     Dosage: 2 MG, QD
     Route: 048
     Dates: start: 20040417, end: 20120724
  5. TOLOPELON [Concomitant]
     Dosage: 1 MG, QD
     Route: 048
     Dates: start: 20120725, end: 20120926
  6. MAGMITT [Concomitant]
     Active Substance: MAGNESIUM OXIDE
     Indication: CONSTIPATION
     Dosage: 330 MG, BID
     Route: 048
     Dates: start: 20040417
  7. LEXOTAN [Concomitant]
     Active Substance: BROMAZEPAM
     Indication: SCHIZOPHRENIA
     Dosage: 5 MG, BID
     Route: 048
     Dates: start: 20040417
  8. TOLOPELON [Concomitant]
     Dosage: 2 MG, QD
     Route: 048
     Dates: start: 20120927
  9. DEPAKENE [Concomitant]
     Active Substance: VALPROIC ACID
     Indication: CYCLOTHYMIC DISORDER
     Dosage: TABS
     Route: 048
     Dates: start: 20040417
  10. AKINETON [Concomitant]
     Active Substance: BIPERIDEN HYDROCHLORIDE
     Indication: PARKINSONISM
     Dosage: 3 MG, QD
     Route: 048
     Dates: start: 20040417
  11. ABILIFY [Suspect]
     Active Substance: ARIPIPRAZOLE
     Dosage: 12 MG, QD
     Route: 048
     Dates: start: 20120911, end: 20120926
  12. NAUZELIN [Concomitant]
     Active Substance: DOMPERIDONE
     Indication: NAUSEA
     Dosage: 10 MG, BID
     Route: 048
     Dates: start: 20040417

REACTIONS (5)
  - Somnolence [Not Recovered/Not Resolved]
  - Seizure [Recovered/Resolved]
  - Malaise [Not Recovered/Not Resolved]
  - Headache [Unknown]
  - Decreased appetite [Not Recovered/Not Resolved]

NARRATIVE: CASE EVENT DATE: 20120907
